FAERS Safety Report 8091328-5 (Version None)
Quarter: 2012Q1

REPORT INFORMATION
  Report Type: 
  Country: None (occurrence: None)
  Receive Date: 20120131
  Receipt Date: 20120118
  Transmission Date: 20120608
  Serious: Yes (Other)
  Sender: FDA-Public Use
  Company Number: US-ELI_LILLY_AND_COMPANY-US201201005648

PATIENT
  Age: 65 Year
  Sex: Female

DRUGS (7)
  1. METOPROLOL TARTRATE [Concomitant]
  2. PRAVACHOL [Concomitant]
  3. CYMBALTA [Suspect]
     Dosage: 30 MG, QD
     Dates: start: 20111117, end: 20120118
  4. CYMBALTA [Suspect]
     Indication: HEADACHE
     Dosage: 60 MG, QD
     Dates: start: 20110729, end: 20111117
  5. TOPIRAMATE [Concomitant]
  6. SYNTHROID [Concomitant]
  7. LISINOPRIL                              /USA/ [Concomitant]

REACTIONS (6)
  - RASH [None]
  - DIARRHOEA [None]
  - STOMATITIS [None]
  - BLISTER [None]
  - WEIGHT DECREASED [None]
  - OFF LABEL USE [None]
